FAERS Safety Report 4828582-6 (Version None)
Quarter: 2005Q4

REPORT INFORMATION
  Report Type: 
  Country: None (occurrence: None)
  Receive Date: 20051115
  Receipt Date: 20051031
  Transmission Date: 20060501
  Serious: Yes (Hospitalization)
  Sender: FDA-Public Use
  Company Number: US-JNJFOC-20050804705

PATIENT
  Sex: Male
  Weight: 92.53 kg

DRUGS (15)
  1. DOXIL [Suspect]
     Indication: MULTIPLE MYELOMA
     Route: 042
  2. VINCRISTINE [Concomitant]
     Indication: MULTIPLE MYELOMA
  3. DECADRON [Concomitant]
     Indication: MULTIPLE MYELOMA
     Dosage: 40MG X4 DAYS, EVERY 4 WEEKS.
  4. RADIATION THERAPY [Concomitant]
     Indication: MULTIPLE MYELOMA
  5. THALIDOMIDE [Concomitant]
  6. DARBEPOETIN [Concomitant]
  7. ZOMETA [Concomitant]
     Route: 042
  8. AVALIDE [Concomitant]
  9. AVALIDE [Concomitant]
  10. LIPITOR [Concomitant]
  11. CALCIUM GLUCONATE [Concomitant]
  12. ALEVE [Concomitant]
  13. DIOVAN [Concomitant]
  14. COUMADIN [Concomitant]
  15. POTASSIUM [Concomitant]

REACTIONS (4)
  - BIFASCICULAR BLOCK [None]
  - BRADYCARDIA [None]
  - CARDIAC FAILURE CONGESTIVE [None]
  - HYPERTENSION [None]
